FAERS Safety Report 6010274-1 (Version None)
Quarter: 2008Q4

REPORT INFORMATION
  Report Type: 
  Country: None (occurrence: None)
  Receive Date: 20081218
  Receipt Date: 20080403
  Transmission Date: 20090506
  Serious: No
  Sender: FDA-Public Use
  Company Number: A0719174A

PATIENT
  Age: 54 Year
  Sex: Female

DRUGS (2)
  1. FLONASE [Suspect]
     Indication: SINUS DISORDER
     Dosage: 50MCG UNKNOWN
     Route: 045
     Dates: start: 19900101, end: 19900101
  2. BLOOD PRESSURE MEDICATION [Concomitant]

REACTIONS (1)
  - HEADACHE [None]
